FAERS Safety Report 17075057 (Version 1)
Quarter: 2019Q4

REPORT INFORMATION
  Report Type: Spontaneous
  Country: DK (occurrence: DK)
  Receive Date: 20191126
  Receipt Date: 20191126
  Transmission Date: 20200122
  Serious: Yes (Hospitalization)
  Sender: FDA-Public Use
  Company Number: DK-PFIZER INC-2019502148

PATIENT
  Age: 63 Year
  Sex: Male

DRUGS (10)
  1. OXAPAX [Concomitant]
     Active Substance: OXAZEPAM
     Indication: RESTLESSNESS
     Dosage: UNK
     Route: 048
  2. GABARATIO [Concomitant]
     Active Substance: GABAPENTIN
     Indication: NEURALGIA
     Dosage: UNK
     Route: 048
  3. MEROPENEM. [Concomitant]
     Active Substance: MEROPENEM
     Indication: SEPSIS
     Dosage: 3000 MG, DAILY
     Route: 042
     Dates: start: 20191008
  4. BACTOCIN [CIPROFLOXACIN] [Concomitant]
     Indication: SEPSIS
     Dosage: 200 MG, DAILY
     Route: 042
     Dates: start: 20191008
  5. NOVORAPID [Concomitant]
     Active Substance: INSULIN ASPART
     Indication: DIABETES MELLITUS
     Dosage: 0-5 IU, AS NEEDED ( MAX. 24XDAILY)
     Route: 058
     Dates: start: 20191009
  6. ECALTA [Suspect]
     Active Substance: ANIDULAFUNGIN
     Indication: SEPSIS
     Dosage: 200 MG, SINGLE
     Route: 042
     Dates: start: 20191022
  7. FRAGMIN [Concomitant]
     Active Substance: DALTEPARIN SODIUM
     Indication: THROMBOSIS PROPHYLAXIS
     Dosage: 1 DF, DAILY
     Route: 058
     Dates: start: 20190921
  8. FUROSEMID ACCORD [Concomitant]
     Indication: POLYURIA
     Dosage: 80 MG, DAILY
     Route: 048
     Dates: start: 2014
  9. SAPIMOL [Concomitant]
     Active Substance: ALBUTEROL SULFATE\IPRATROPIUM BROMIDE
     Indication: BRONCHOSPASM
     Dosage: UNK
     Route: 055
  10. PROPYLTHIOURACIL MEDIC [Concomitant]
     Indication: METABOLIC DISORDER
     Dosage: 100 MG, DAILY
     Route: 048
     Dates: start: 20170519

REACTIONS (2)
  - Alanine aminotransferase increased [Not Recovered/Not Resolved]
  - Blood alkaline phosphatase increased [Not Recovered/Not Resolved]

NARRATIVE: CASE EVENT DATE: 20191026
